FAERS Safety Report 8187278 (Version 2)
Quarter: 2013Q1

REPORT INFORMATION
  Report Type: Spontaneous
  Country: US (occurrence: US)
  Receive Date: 20111018
  Receipt Date: 20130221
  Transmission Date: 20140127
  Serious: Yes (Other)
  Sender: FDA-Public Use
  Company Number: US-ASTRAZENECA-2011SE22813

PATIENT
  Age: 55 Year
  Sex: Male

DRUGS (3)
  1. SYMBICORT PMDI [Suspect]
     Dosage: FREQUENCY UNKNOWN
     Route: 055
  2. SYMBICORT PMDI [Suspect]
     Dosage: FREQUENCY UNKNOWN
     Route: 055
  3. SEROQUEL [Suspect]
     Route: 048

REACTIONS (3)
  - Hernia [Unknown]
  - Asthma [Unknown]
  - Drug dose omission [Unknown]
